FAERS Safety Report 6428099-1 (Version None)
Quarter: 2009Q4

REPORT INFORMATION
  Report Type: 
  Country: None (occurrence: None)
  Receive Date: 20091105
  Receipt Date: 20091030
  Transmission Date: 20100525
  Serious: Yes (Life-Threatening, Hospitalization)
  Sender: FDA-Public Use
  Company Number: DK-ASTRAZENECA-2009SE05472

PATIENT
  Age: 27125 Day
  Sex: Female
  Weight: 65 kg

DRUGS (8)
  1. SEROQUEL XR [Suspect]
     Indication: DEPRESSION
     Route: 048
     Dates: start: 20090116, end: 20090319
  2. NORTRIPTYLINE HCL [Interacting]
     Indication: DEPRESSION
     Route: 048
     Dates: start: 20050101, end: 20090319
  3. LAMOTRIGIN -UNK MAH [Interacting]
     Dates: start: 20090126, end: 20090319
  4. MEROPENEM [Concomitant]
     Route: 042
  5. OXAZEPAM ^SAD^ [Concomitant]
     Route: 048
  6. LAKTULOSE ^MEDIC^ [Concomitant]
     Dosage: 667 MG/ML
     Route: 048
  7. GLYOKTYL [Concomitant]
     Route: 054
  8. FURIX [Concomitant]
     Route: 042

REACTIONS (3)
  - DRUG INTERACTION [None]
  - LEUKOPENIA [None]
  - PYREXIA [None]
